FAERS Safety Report 10192540 (Version 2)
Quarter: 2014Q2

REPORT INFORMATION
  Report Type: Spontaneous
  Country: FR (occurrence: FR)
  Receive Date: 20140523
  Receipt Date: 20140523
  Transmission Date: 20141212
  Serious: Yes (Other)
  Sender: FDA-Public Use
  Company Number: FR-JNJFOC-20140400251

PATIENT
  Sex: Female

DRUGS (2)
  1. EPITOMAX [Suspect]
     Indication: PARTIAL SEIZURES
     Route: 048
     Dates: start: 20131108, end: 2014
  2. EPITOMAX [Suspect]
     Indication: HEADACHE
     Route: 048
     Dates: start: 20131108, end: 2014

REACTIONS (6)
  - Intestinal obstruction [Unknown]
  - Contracted bladder [Unknown]
  - Constipation [Unknown]
  - Abdominal pain [Recovering/Resolving]
  - Dyspepsia [Recovering/Resolving]
  - Gastrointestinal sounds abnormal [Recovering/Resolving]
